FAERS Safety Report 22176303 (Version 1)
Quarter: 2023Q2

REPORT INFORMATION
  Report Type: Spontaneous
  Country: US (occurrence: US)
  Receive Date: 20230405
  Receipt Date: 20230405
  Transmission Date: 20230722
  Serious: No
  Sender: FDA-Public Use
  Company Number: US-BAYER-2023A037833

PATIENT
  Age: 54 Year
  Sex: Female

DRUGS (2)
  1. CLARITIN-D 24 HOUR [Suspect]
     Active Substance: LORATADINE\PSEUDOEPHEDRINE SULFATE
     Indication: Nasopharyngitis
     Dosage: 1 DF, QD
     Route: 048
     Dates: start: 20230318, end: 20230321
  2. CLARITIN-D 24 HOUR [Suspect]
     Active Substance: LORATADINE\PSEUDOEPHEDRINE SULFATE
     Indication: Hypersensitivity

REACTIONS (1)
  - Drug effect less than expected [Recovering/Resolving]

NARRATIVE: CASE EVENT DATE: 20230318
